FAERS Safety Report 8829696 (Version 1)
Quarter: 2012Q4

REPORT INFORMATION
  Report Type: Spontaneous
  Country: US (occurrence: None)
  Receive Date: 20121005
  Receipt Date: 20121005
  Transmission Date: 20130627
  Serious: Yes (Hospitalization, Other)
  Sender: FDA-Public Use
  Company Number: None

PATIENT
  Age: 39 Year
  Sex: Female
  Weight: 81.65 kg

DRUGS (1)
  1. MIRENA IUD [Suspect]
     Indication: BIRTH CONTROL
     Dates: start: 20040514, end: 20071111

REACTIONS (6)
  - Pregnancy with contraceptive device [None]
  - Caesarean section [None]
  - Device dislocation [None]
  - Procedural complication [None]
  - Exposure during pregnancy [None]
  - Bladder injury [None]
